FAERS Safety Report 7265228-4 (Version None)
Quarter: 2011Q1

REPORT INFORMATION
  Report Type: 
  Country: None (occurrence: None)
  Receive Date: 20110131
  Receipt Date: 20110126
  Transmission Date: 20110831
  Serious: Yes (Other)
  Sender: FDA-Public Use
  Company Number: FR-ABBOTT-10P-056-0692250-00

PATIENT
  Sex: Female
  Weight: 45 kg

DRUGS (1)
  1. HUMIRA [Suspect]
     Indication: CROHN'S DISEASE
     Dates: start: 20100801

REACTIONS (5)
  - PARAESTHESIA [None]
  - PRURITUS [None]
  - URTICARIA [None]
  - LEUKOPENIA [None]
  - SKIN PLAQUE [None]
